FAERS Safety Report 4335558-4 (Version None)
Quarter: 2004Q2

REPORT INFORMATION
  Report Type: 
  Country: None (occurrence: None)
  Receive Date: 20040406
  Receipt Date: 20040322
  Transmission Date: 20050107
  Serious: No
  Sender: FDA-Public Use
  Company Number: 04H-163-0255487-00

PATIENT
  Sex: 0

DRUGS (1)
  1. MORPHINE SULFATE INJ [Suspect]
     Dosage: 1 MG, EVERY 5 MINUTES, INTRAVENOUS
     Route: 042

REACTIONS (2)
  - CARDIAC ARREST [None]
  - RESPIRATORY ARREST [None]
